FAERS Safety Report 16942104 (Version 2)
Quarter: 2019Q4

REPORT INFORMATION
  Report Type: Spontaneous
  Country: ES (occurrence: ES)
  Receive Date: 20191021
  Receipt Date: 20191127
  Transmission Date: 20200122
  Serious: Yes (Hospitalization)
  Sender: FDA-Public Use
  Company Number: ES-ROCHE-2421112

PATIENT
  Age: 53 Year
  Sex: Female

DRUGS (4)
  1. CYTARABINE. [Concomitant]
     Active Substance: CYTARABINE
  2. CISPLATIN. [Concomitant]
     Active Substance: CISPLATIN
  3. RITUXIMAB. [Suspect]
     Active Substance: RITUXIMAB
     Indication: DIFFUSE LARGE B-CELL LYMPHOMA
     Route: 065
  4. DEXAMETHASONE. [Concomitant]
     Active Substance: DEXAMETHASONE

REACTIONS (4)
  - Neutrophilia [Unknown]
  - Leukocytosis [Unknown]
  - Platelet count increased [Unknown]
  - Anaemia [Not Recovered/Not Resolved]

NARRATIVE: CASE EVENT DATE: 20190923
